FAERS Safety Report 6668482-2 (Version None)
Quarter: 2010Q2

REPORT INFORMATION
  Report Type: 
  Country: None (occurrence: None)
  Receive Date: 20100406
  Receipt Date: 20100401
  Transmission Date: 20101027
  Serious: Yes (Death, Other)
  Sender: FDA-Public Use
  Company Number: PHHY2010GB14947

PATIENT
  Sex: Female
  Weight: 66.5 kg

DRUGS (2)
  1. CLOZARIL [Suspect]
     Indication: SCHIZOPHRENIA
     Dosage: 500 MG, UNK
     Route: 048
     Dates: start: 20010424
  2. AMISULPRIDE [Concomitant]

REACTIONS (2)
  - DEPRESSION [None]
  - PULMONARY EMBOLISM [None]
